FAERS Safety Report 15307674 (Version 1)
Quarter: 2018Q3

REPORT INFORMATION
  Report Type: Spontaneous
  Country: US (occurrence: US)
  Receive Date: 20180822
  Receipt Date: 20180822
  Transmission Date: 20181010
  Serious: No
  Sender: FDA-Public Use
  Company Number: US-ARBOR PHARMACEUTICALS, LLC-US-2018ARB000838

PATIENT
  Sex: Male

DRUGS (1)
  1. OTOVEL [Suspect]
     Active Substance: CIPROFLOXACIN\FLUOCINOLONE ACETONIDE
     Indication: OTITIS EXTERNA
     Dosage: UNK

REACTIONS (1)
  - Drug ineffective for unapproved indication [Unknown]
